FAERS Safety Report 10113080 (Version 1)
Quarter: 2014Q2

REPORT INFORMATION
  Report Type: Other
  Country: US (occurrence: US)
  Receive Date: 20140425
  Receipt Date: 20140425
  Transmission Date: 20141212
  Serious: Yes (Other)
  Sender: FDA-Public Use
  Company Number: US-GSKPPD-2014GSK014337

PATIENT
  Sex: 0

DRUGS (1)
  1. AVANDIA [Suspect]
     Indication: DIABETES MELLITUS
     Route: 048

REACTIONS (12)
  - Dyspnoea [None]
  - Dyspnoea [None]
  - Coronary arterial stent insertion [None]
  - Myocardial infarction [None]
  - Coronary artery bypass [None]
  - Renal failure [None]
  - Oedema [None]
  - Cardiac failure congestive [None]
  - Coronary artery disease [None]
  - Hypertension [None]
  - Chest pain [None]
  - Arteriosclerosis [None]
